FAERS Safety Report 5009772-9 (Version None)
Quarter: 2006Q2

REPORT INFORMATION
  Report Type: 
  Country: None (occurrence: None)
  Receive Date: 20060524
  Receipt Date: 19970224
  Transmission Date: 20061013
  Serious: Yes (Hospitalization)
  Sender: FDA-Public Use
  Company Number: FR-ROCHE-76701

PATIENT
  Age: 40 Year
  Sex: Male
  Weight: 91 kg

DRUGS (3)
  1. ROFERON-A [Suspect]
     Indication: HEPATITIS
     Route: 058
     Dates: start: 19960807, end: 19970127
  2. PLACEBO [Suspect]
     Indication: HEPATITIS
     Route: 048
     Dates: start: 19960807, end: 19970122
  3. PARACETAMOL [Concomitant]
     Indication: INFLUENZA LIKE ILLNESS
     Dates: start: 19960807

REACTIONS (1)
  - TENDON RUPTURE [None]
